FAERS Safety Report 8484052-8 (Version None)
Quarter: 2012Q3

REPORT INFORMATION
  Report Type: 
  Country: None (occurrence: None)
  Receive Date: 20120703
  Receipt Date: 20120625
  Transmission Date: 20120928
  Serious: Yes (Hospitalization)
  Sender: FDA-Public Use
  Company Number: US-BAYER-2011-113844

PATIENT
  Age: 37 Year
  Sex: Female
  Weight: 95 kg

DRUGS (9)
  1. ALLEGRA [Concomitant]
     Dosage: 1 TABLET DAILY
     Route: 048
  2. NEXIUM [Concomitant]
     Dosage: 1 TABLET, PRN
     Route: 048
  3. PREVACID [Concomitant]
  4. YAZ [Suspect]
     Indication: PREMENSTRUAL SYNDROME
     Dosage: UNK
     Route: 048
     Dates: start: 20070401, end: 20080501
  5. LEXAPRO [Concomitant]
  6. WELCHOL [Concomitant]
     Dosage: 2 TABLETS, BID
     Route: 048
     Dates: start: 20080403
  7. ALBUTEROL [Concomitant]
     Dosage: 2 PUFF(S), PRN, INHALATION
  8. SINGULAIR [Concomitant]
     Dosage: 1 TABLET DAILY
     Route: 048
  9. YAZ [Suspect]

REACTIONS (4)
  - DYSPNOEA [None]
  - PORTAL VEIN THROMBOSIS [None]
  - INJURY [None]
  - EMOTIONAL DISTRESS [None]
